FAERS Safety Report 4992229-9 (Version None)
Quarter: 2006Q2

REPORT INFORMATION
  Report Type: 
  Country: None (occurrence: None)
  Receive Date: 20060502
  Receipt Date: 20060421
  Transmission Date: 20061013
  Serious: Yes (Other)
  Sender: FDA-Public Use
  Company Number: 2006054676

PATIENT
  Age: 82 Year
  Sex: Male
  Weight: 78.0187 kg

DRUGS (3)
  1. DRAMAMINE [Suspect]
     Indication: DIZZINESS
     Dosage: 1 TABLET TWICE DAILY, ORAL
     Route: 048
     Dates: start: 20060420, end: 20060421
  2. TERAZOSIN (TERAZOSIN) [Concomitant]
  3. FINASTERIDE [Concomitant]

REACTIONS (2)
  - DRY THROAT [None]
  - TRANSIENT ISCHAEMIC ATTACK [None]
